FAERS Safety Report 8100853-X (Version None)
Quarter: 2012Q1

REPORT INFORMATION
  Report Type: 
  Country: None (occurrence: None)
  Receive Date: 20120129
  Receipt Date: 20111014
  Transmission Date: 20120608
  Serious: No
  Sender: FDA-Public Use
  Company Number: US-ABBOTT-11P-163-0865070-00

PATIENT
  Age: 71 Year
  Sex: Female

DRUGS (2)
  1. HUMIRA [Suspect]
     Indication: PSORIASIS
     Dates: start: 20110607
  2. L-ARGININE [Suspect]
     Indication: SUPPLEMENTATION THERAPY
     Dosage: 2 TAB AT 11:30 AM, 2 AT 6:30 PM
     Dates: start: 20111014

REACTIONS (5)
  - ABDOMINAL PAIN [None]
  - ABDOMINAL DISTENSION [None]
  - BOWEL MOVEMENT IRREGULARITY [None]
  - CHEST PAIN [None]
  - CONSTIPATION [None]
